FAERS Safety Report 9127313 (Version 2)
Quarter: 2013Q2

REPORT INFORMATION
  Report Type: Spontaneous
  Country: FR (occurrence: FR)
  Receive Date: 20130122
  Receipt Date: 20130627
  Transmission Date: 20140414
  Serious: Yes (Hospitalization)
  Sender: FDA-Public Use
  Company Number: PHHY2013FR004954

PATIENT
  Age: 61 Year
  Sex: Female

DRUGS (2)
  1. ZOMETA [Suspect]
     Indication: METASTASES TO BONE
     Dosage: UNK
     Route: 042
     Dates: start: 201103, end: 20121031
  2. AVASTIN [Suspect]
     Indication: BREAST CANCER
     Dosage: UNK UKN, UNK
     Route: 042
     Dates: start: 201011, end: 20121031

REACTIONS (1)
  - Osteonecrosis [Not Recovered/Not Resolved]
